FAERS Safety Report 6259690-3 (Version None)
Quarter: 2009Q3

REPORT INFORMATION
  Report Type: 
  Country: None (occurrence: None)
  Receive Date: 20090708
  Receipt Date: 20090626
  Transmission Date: 20100115
  Serious: Yes (Other)
  Sender: FDA-Public Use
  Company Number: US-BAYER-200921828NA

PATIENT
  Age: 56 Year
  Sex: Female

DRUGS (6)
  1. AVELOX [Suspect]
     Indication: UPPER RESPIRATORY TRACT INFECTION
     Dosage: TOTAL DAILY DOSE: 400 MG  UNIT DOSE: 400 MG
     Route: 048
     Dates: start: 20090109
  2. FOSAMAX PLUS D [Concomitant]
  3. REQUIP [Concomitant]
  4. NIFEREX-150 FORTE [Concomitant]
  5. LEXAPRO [Concomitant]
  6. CENESTIN [Concomitant]

REACTIONS (5)
  - ANAPHYLACTIC REACTION [None]
  - ANORECTAL DISCOMFORT [None]
  - DYSPNOEA [None]
  - LIP SWELLING [None]
  - OCULAR HYPERAEMIA [None]
